FAERS Safety Report 4399368-4 (Version None)
Quarter: 2004Q3

REPORT INFORMATION
  Report Type: 
  Country: None (occurrence: None)
  Receive Date: 20040712
  Receipt Date: 20040623
  Transmission Date: 20050211
  Serious: Yes (Hospitalization)
  Sender: FDA-Public Use
  Company Number: A06200400185

PATIENT
  Age: 35 Year
  Sex: Female

DRUGS (2)
  1. PLAQUENIL [Suspect]
     Indication: RHEUMATOID ARTHRITIS
     Dosage: 200 MG OD
     Route: 048
     Dates: start: 20040407, end: 20040614
  2. CELEBREX [Suspect]
     Indication: RHEUMATOID ARTHRITIS
     Dosage: 200 MG OD
     Route: 048
     Dates: start: 20040407, end: 20040614

REACTIONS (4)
  - INTESTINAL OBSTRUCTION [None]
  - NAUSEA [None]
  - PELVIC PAIN [None]
  - VOMITING [None]
